FAERS Safety Report 7922268 (Version 3)
Quarter: 2012Q4

REPORT INFORMATION
  Report Type: 
  Country: US (occurrence: US)
  Receive Date: 20110429
  Receipt Date: 20121120
  Transmission Date: 20130627
  Serious: Yes (Hospitalization)
  Sender: FDA-Public Use
  Company Number: US-ASTRAZENECA-2011SE08814

PATIENT
  Age: 68 Year
  Sex: Female

DRUGS (2)
  1. NEXIUM [Suspect]
     Route: 048
  2. PRILOSEC [Suspect]
     Route: 048

REACTIONS (7)
  - Neoplasm [Unknown]
  - Gallbladder disorder [Unknown]
  - Gastrooesophageal reflux disease [Unknown]
  - Dyspepsia [Unknown]
  - Abdominal discomfort [Unknown]
  - Drug dose omission [Unknown]
  - Drug ineffective [Unknown]
